FAERS Safety Report 6013666-X (Version None)
Quarter: 2008Q4

REPORT INFORMATION
  Report Type: 
  Country: None (occurrence: None)
  Receive Date: 20081218
  Receipt Date: 20081218
  Transmission Date: 20090506
  Serious: No
  Sender: FDA-Public Use
  Company Number: None

PATIENT
  Age: 63 Year
  Sex: Female

DRUGS (1)
  1. DIVALPROEX SODIUM [Suspect]
     Dosage: TAKE AS DIRECED

REACTIONS (3)
  - DELUSION [None]
  - HOT FLUSH [None]
  - OROPHARYNGEAL PAIN [None]
